FAERS Safety Report 16658757 (Version 1)
Quarter: 2019Q3

REPORT INFORMATION
  Report Type: Spontaneous
  Country: CA (occurrence: CA)
  Receive Date: 20190801
  Receipt Date: 20190801
  Transmission Date: 20191004
  Serious: Yes (Other)
  Sender: FDA-Public Use
  Company Number: CA-TEVA-2019-CA-1085028

PATIENT
  Age: 41 Year
  Sex: Female

DRUGS (21)
  1. GEMFIBROZIL. [Concomitant]
     Active Substance: GEMFIBROZIL
  2. COVERSYL/FRA/ [Concomitant]
  3. IBUPROFEN. [Concomitant]
     Active Substance: IBUPROFEN
  4. SIMPONI [Concomitant]
     Active Substance: GOLIMUMAB
  5. INDOMETHACIN. [Suspect]
     Active Substance: INDOMETHACIN
     Indication: PRODUCT USED FOR UNKNOWN INDICATION
     Route: 065
  6. COSENTYX [Suspect]
     Active Substance: SECUKINUMAB
     Route: 058
  7. FENTANYL CITRATE INJECTION [Suspect]
     Active Substance: FENTANYL CITRATE
     Indication: PRODUCT USED FOR UNKNOWN INDICATION
     Route: 065
  8. DESOXIMETASONE. [Concomitant]
     Active Substance: DESOXIMETASONE
  9. METHOTREXATE. [Suspect]
     Active Substance: METHOTREXATE
     Indication: PRODUCT USED FOR UNKNOWN INDICATION
     Route: 065
  10. CELEBREX [Concomitant]
     Active Substance: CELECOXIB
  11. NAPROXEN. [Concomitant]
     Active Substance: NAPROXEN
  12. COSENTYX [Suspect]
     Active Substance: SECUKINUMAB
     Indication: ANKYLOSING SPONDYLITIS
     Route: 058
  13. HUMIRA [Concomitant]
     Active Substance: ADALIMUMAB
  14. ENBREL [Concomitant]
     Active Substance: ETANERCEPT
  15. SALAZOPYRIN [Concomitant]
     Active Substance: SULFASALAZINE
  16. SULFASALAZINE. [Concomitant]
     Active Substance: SULFASALAZINE
  17. ALEVE [Concomitant]
     Active Substance: NAPROXEN SODIUM
  18. ALLOPURINOL. [Concomitant]
     Active Substance: ALLOPURINOL
  19. CIMZIA [Concomitant]
     Active Substance: CERTOLIZUMAB PEGOL
  20. REMICADE [Concomitant]
     Active Substance: INFLIXIMAB
  21. VOLTAREN [Suspect]
     Active Substance: DICLOFENAC SODIUM
     Indication: PRODUCT USED FOR UNKNOWN INDICATION
     Route: 065

REACTIONS (3)
  - Neuralgia [Not Recovered/Not Resolved]
  - Bursitis [Not Recovered/Not Resolved]
  - Drug ineffective [Not Recovered/Not Resolved]
